FAERS Safety Report 21879305 (Version 1)
Quarter: 2023Q1

REPORT INFORMATION
  Report Type: Spontaneous
  Country: US (occurrence: US)
  Receive Date: 20230118
  Receipt Date: 20230118
  Transmission Date: 20230417
  Serious: Yes (Death, Other)
  Sender: FDA-Public Use
  Company Number: US-AMGEN-USASP2023003763

PATIENT

DRUGS (26)
  1. RITUXIMAB [Suspect]
     Active Substance: RITUXIMAB
     Indication: Diffuse large B-cell lymphoma
     Dosage: UNK
     Route: 065
  2. RITUXIMAB [Suspect]
     Active Substance: RITUXIMAB
     Indication: Mantle cell lymphoma
  3. RITUXIMAB [Suspect]
     Active Substance: RITUXIMAB
     Indication: Burkitt^s lymphoma
  4. FLUDARABINE [Concomitant]
     Active Substance: FLUDARABINE PHOSPHATE
     Indication: Non-Hodgkin^s lymphoma
     Dosage: UNK
  5. CYCLOPHOSPHAMIDE [Concomitant]
     Active Substance: CYCLOPHOSPHAMIDE
     Indication: Non-Hodgkin^s lymphoma
     Dosage: UNK
  6. ETOPOSIDE [Concomitant]
     Active Substance: ETOPOSIDE
     Indication: Non-Hodgkin^s lymphoma
  7. PREDNISONE [Concomitant]
     Active Substance: PREDNISONE
     Indication: Non-Hodgkin^s lymphoma
  8. VINCRISTINE [Concomitant]
     Active Substance: VINCRISTINE
     Indication: Non-Hodgkin^s lymphoma
  9. DOXORUBICIN [Concomitant]
     Active Substance: DOXORUBICIN
     Indication: Non-Hodgkin^s lymphoma
  10. DEXAMETHASONE [Concomitant]
     Active Substance: DEXAMETHASONE
     Indication: Non-Hodgkin^s lymphoma
  11. CYTARABINE [Concomitant]
     Active Substance: CYTARABINE
     Indication: Non-Hodgkin^s lymphoma
     Route: 029
  12. OXALIPLATIN [Concomitant]
     Active Substance: OXALIPLATIN
     Indication: Non-Hodgkin^s lymphoma
  13. POLATUZUMAB VEDOTIN [Concomitant]
     Active Substance: POLATUZUMAB VEDOTIN
     Indication: Non-Hodgkin^s lymphoma
  14. ZANUBRUTINIB [Concomitant]
     Active Substance: ZANUBRUTINIB
     Indication: Non-Hodgkin^s lymphoma
  15. IBRUTINIB [Concomitant]
     Active Substance: IBRUTINIB
     Indication: Non-Hodgkin^s lymphoma
  16. LENALIDOMIDE [Concomitant]
     Active Substance: LENALIDOMIDE
     Indication: Non-Hodgkin^s lymphoma
  17. GEMCITABINE [Concomitant]
     Active Substance: GEMCITABINE
     Indication: Non-Hodgkin^s lymphoma
  18. VENETOCLAX [Concomitant]
     Active Substance: VENETOCLAX
     Indication: Non-Hodgkin^s lymphoma
  19. METHOTREXATE [Concomitant]
     Active Substance: METHOTREXATE
     Indication: Non-Hodgkin^s lymphoma
  20. LEUCOVORIN [Concomitant]
     Active Substance: LEUCOVORIN
     Indication: Non-Hodgkin^s lymphoma
  21. BORTEZOMIB [Concomitant]
     Active Substance: BORTEZOMIB
     Indication: Non-Hodgkin^s lymphoma
  22. IFOSFAMIDE [Concomitant]
     Active Substance: IFOSFAMIDE
     Indication: Non-Hodgkin^s lymphoma
     Dosage: UNK
  23. TOPOTECAN [Concomitant]
     Active Substance: TOPOTECAN HYDROCHLORIDE
     Indication: Non-Hodgkin^s lymphoma
     Dosage: UNK
  24. VINORELBINE [Concomitant]
     Active Substance: VINORELBINE TARTRATE
     Indication: Non-Hodgkin^s lymphoma
     Dosage: UNK
  25. THIOTEPA [Concomitant]
     Active Substance: THIOTEPA
     Indication: Non-Hodgkin^s lymphoma
     Dosage: UNK
  26. CLOFARABINE [Concomitant]
     Active Substance: CLOFARABINE
     Indication: Non-Hodgkin^s lymphoma
     Dosage: UNK

REACTIONS (18)
  - Death [Fatal]
  - Immune effector cell-associated neurotoxicity syndrome [Unknown]
  - Diffuse large B-cell lymphoma [Unknown]
  - Mantle cell lymphoma [Unknown]
  - Burkitt^s lymphoma [Unknown]
  - Trismus [Unknown]
  - Mucosal inflammation [Unknown]
  - Anaemia [Unknown]
  - Neutropenia [Unknown]
  - Thrombocytopenia [Unknown]
  - Cytokine release syndrome [Unknown]
  - Leukopenia [Recovered/Resolved]
  - Dermatitis [Unknown]
  - Dry mouth [Unknown]
  - Therapy partial responder [Unknown]
  - Treatment failure [Unknown]
  - Lymphopenia [Recovered/Resolved]
  - Fatigue [Unknown]
